FAERS Safety Report 4447404-9 (Version None)
Quarter: 2004Q3

REPORT INFORMATION
  Report Type: 
  Country: None (occurrence: None)
  Receive Date: 20040823
  Receipt Date: 20040721
  Transmission Date: 20050211
  Serious: No
  Sender: FDA-Public Use
  Company Number: PHEH2004US07843

PATIENT
  Age: 50 Year
  Sex: Female

DRUGS (1)
  1. ZELNORM [Suspect]
     Indication: COLITIS COLLAGENOUS
     Dosage: 6 MG BID ORAL
     Route: 048
     Dates: start: 20040301, end: 20040714

REACTIONS (1)
  - ALOPECIA [None]
